FAERS Safety Report 20159633 (Version 7)
Quarter: 2024Q3

REPORT INFORMATION
  Report Type: Report from Study
  Country: DE (occurrence: DE)
  Receive Date: 20211208
  Receipt Date: 20240805
  Transmission Date: 20241016
  Serious: Yes (Hospitalization, Other)
  Sender: ROCHE
  Company Number: DE-ROCHE-2646852

PATIENT
  Age: 44 Year
  Sex: Female

DRUGS (9)
  1. OCREVUS [Suspect]
     Active Substance: OCRELIZUMAB
     Indication: Relapsing-remitting multiple sclerosis
     Route: 042
     Dates: start: 20200713
  2. OCREVUS [Suspect]
     Active Substance: OCRELIZUMAB
     Indication: Secondary progressive multiple sclerosis
     Route: 042
     Dates: start: 20200727
  3. OCREVUS [Suspect]
     Active Substance: OCRELIZUMAB
     Route: 042
     Dates: start: 20210224
  4. COMIRNATY (TOZINAMERAN) [Suspect]
     Active Substance: TOZINAMERAN
     Indication: Product used for unknown indication
     Dosage: SUBSEQUENT DOSE ON 28/JUL/2021
     Route: 065
  5. MODERNA COVID-19 VACCINE [Suspect]
     Active Substance: ELASOMERAN
     Indication: Product used for unknown indication
     Route: 065
  6. HYDROCORTISONE [Concomitant]
     Active Substance: HYDROCORTISONE\HYDROCORTISONE ACETATE
  7. GABAPENTIN [Concomitant]
     Active Substance: GABAPENTIN
  8. PANTOPRAZOLE SODIUM [Concomitant]
     Active Substance: PANTOPRAZOLE SODIUM
  9. NABIXIMOLS [Concomitant]
     Active Substance: NABIXIMOLS

REACTIONS (30)
  - Fatigue [Recovered/Resolved]
  - Abdominal pain upper [Recovered/Resolved]
  - Blood pressure decreased [Recovered/Resolved]
  - Alopecia [Recovered/Resolved]
  - Pain of skin [Not Recovered/Not Resolved]
  - Drug ineffective [Unknown]
  - Apathy [Not Recovered/Not Resolved]
  - Depression [Not Recovered/Not Resolved]
  - Multiple sclerosis [Not Recovered/Not Resolved]
  - Heavy menstrual bleeding [Recovered/Resolved]
  - Uterine leiomyoma [Recovered/Resolved]
  - Fall [Unknown]
  - Ligament rupture [Recovered/Resolved]
  - SARS-CoV-2 antibody test negative [Not Recovered/Not Resolved]
  - Infection susceptibility increased [Unknown]
  - Headache [Recovered/Resolved]
  - Diarrhoea [Recovered/Resolved]
  - Nausea [Recovered/Resolved]
  - Joint space narrowing [Recovering/Resolving]
  - Orthopaedic examination abnormal [Recovering/Resolving]
  - Cystitis [Recovered/Resolved]
  - Multiple sclerosis pseudo relapse [Recovered/Resolved]
  - Pyrexia [Recovered/Resolved]
  - Concussion [Recovered/Resolved]
  - Skin laceration [Recovered/Resolved]
  - Cystitis noninfective [Recovered/Resolved]
  - Bacterial vaginosis [Recovered/Resolved]
  - Candida infection [Recovered/Resolved]
  - B-lymphocyte count decreased [Not Recovered/Not Resolved]
  - Hiatus hernia [Not Recovered/Not Resolved]

NARRATIVE: CASE EVENT DATE: 20200713
